FAERS Safety Report 8277286-9 (Version None)
Quarter: 2012Q2

REPORT INFORMATION
  Report Type: 
  Country: None (occurrence: None)
  Receive Date: 20120412
  Receipt Date: 20120405
  Transmission Date: 20120825
  Serious: Yes (Other)
  Sender: FDA-Public Use
  Company Number: US-GLAXOSMITHKLINE-A0972441A

PATIENT
  Age: 68 Year
  Sex: Female

DRUGS (4)
  1. LASIX [Concomitant]
  2. ISRADIPINE [Suspect]
     Indication: HEART VALVE REPLACEMENT
     Dosage: 10MG SINGLE DOSE
     Route: 048
  3. PREMARIN [Concomitant]
  4. SYNTHROID [Concomitant]

REACTIONS (4)
  - VOMITING [None]
  - NAUSEA [None]
  - LOSS OF CONSCIOUSNESS [None]
  - BEDRIDDEN [None]
